FAERS Safety Report 8556407-4 (Version None)
Quarter: 2012Q3

REPORT INFORMATION
  Report Type: 
  Country: None (occurrence: None)
  Receive Date: 20120801
  Receipt Date: 20120727
  Transmission Date: 20120928
  Serious: Yes (Other)
  Sender: FDA-Public Use
  Company Number: PHHY2012BR044542

PATIENT
  Sex: Female

DRUGS (1)
  1. EXELON [Suspect]
     Indication: DEMENTIA ALZHEIMER'S TYPE
     Dosage: UNK UKN, UNK
     Route: 062
     Dates: start: 20101201

REACTIONS (3)
  - HEPATIC NEOPLASM MALIGNANT [None]
  - HODGKIN'S DISEASE [None]
  - NODULE [None]
